FAERS Safety Report 5818900-4 (Version None)
Quarter: 2008Q3

REPORT INFORMATION
  Report Type: 
  Country: None (occurrence: None)
  Receive Date: 20080721
  Receipt Date: 20080721
  Transmission Date: 20090109
  Serious: No
  Sender: FDA-Public Use
  Company Number: None

PATIENT
  Age: 32 Year
  Sex: Female
  Weight: 54.4316 kg

DRUGS (2)
  1. SUBUTEX [Suspect]
     Indication: PAIN
     Dosage: HALF TABLET TWICE PO
     Route: 048
     Dates: start: 20061003, end: 20080719
  2. PAXIL CR [Suspect]
     Indication: ANXIETY
     Dosage: ONE TABLET ONCE PO
     Route: 048
     Dates: start: 20080618, end: 20080618

REACTIONS (13)
  - BLINDNESS [None]
  - DIZZINESS [None]
  - FALL [None]
  - FATIGUE [None]
  - FEAR [None]
  - FEELING ABNORMAL [None]
  - HEADACHE [None]
  - HEART RATE INCREASED [None]
  - NAUSEA [None]
  - SLUGGISHNESS [None]
  - SPEECH DISORDER [None]
  - STOMACH DISCOMFORT [None]
  - TREMOR [None]
